FAERS Safety Report 21135203 (Version 4)
Quarter: 2025Q2

REPORT INFORMATION
  Report Type: Report from Study
  Country: JP (occurrence: JP)
  Receive Date: 20220727
  Receipt Date: 20250528
  Transmission Date: 20250716
  Serious: Yes (Hospitalization, Other)
  Sender: TAKEDA
  Company Number: JP-TAKEDA-2022TJP067247

PATIENT
  Sex: Male
  Weight: 45 kg

DRUGS (22)
  1. TEDUGLUTIDE [Suspect]
     Active Substance: TEDUGLUTIDE
     Indication: Short-bowel syndrome
  2. TEDUGLUTIDE [Suspect]
     Active Substance: TEDUGLUTIDE
  3. TEDUGLUTIDE [Suspect]
     Active Substance: TEDUGLUTIDE
  4. TEDUGLUTIDE [Suspect]
     Active Substance: TEDUGLUTIDE
  5. VONOPRAZAN FUMARATE [Concomitant]
     Active Substance: VONOPRAZAN FUMARATE
  6. RISEDRONATE SODIUM [Concomitant]
     Active Substance: RISEDRONATE SODIUM
  7. HUMIRA [Concomitant]
     Active Substance: ADALIMUMAB
  8. AZATHIOPRINE [Concomitant]
     Active Substance: AZATHIOPRINE
  9. SHAKUYAKUKANZOTO [Concomitant]
     Active Substance: HERBALS
  10. LOPEMIN [Concomitant]
  11. BETAMETHASONE DIPROPIONATE [Concomitant]
     Active Substance: BETAMETHASONE DIPROPIONATE
  12. BUDESONIDE [Concomitant]
     Active Substance: BUDESONIDE
  13. AMINO ACIDS\CARBOHYDRATES\MINERALS\SOYBEAN OIL\VITAMINS [Concomitant]
     Active Substance: AMINO ACIDS\CARBOHYDRATES\MINERALS\SOYBEAN OIL\VITAMINS
  14. AMINO ACIDS\DEXTROSE\ELECTROLYTES NOS\MINERALS\VITAMINS [Concomitant]
     Active Substance: AMINO ACIDS\DEXTROSE\ELECTROLYTES NOS\MINERALS\VITAMINS
     Indication: Short-bowel syndrome
  15. Goreisanryo [Concomitant]
  16. AUGMENTIN [Concomitant]
     Active Substance: AMOXICILLIN\CLAVULANATE POTASSIUM
  17. METHYLCOBALAMIN [Concomitant]
     Active Substance: METHYLCOBALAMIN
  18. FOLIC ACID [Concomitant]
     Active Substance: FOLIC ACID
  19. FERROUS SULFATE [Concomitant]
     Active Substance: FERROUS SULFATE
  20. CALONAL [Concomitant]
     Active Substance: ACETAMINOPHEN
  21. SKYRIZI [Concomitant]
     Active Substance: RISANKIZUMAB-RZAA
  22. GLYCOSAMINOGLYCANS [Concomitant]
     Active Substance: GLYCOSAMINOGLYCANS

REACTIONS (2)
  - Stoma complication [Recovering/Resolving]
  - Deep vein thrombosis [Recovering/Resolving]

NARRATIVE: CASE EVENT DATE: 20220301
